FAERS Safety Report 7482465-4 (Version None)
Quarter: 2011Q2

REPORT INFORMATION
  Report Type: 
  Country: None (occurrence: None)
  Receive Date: 20110516
  Receipt Date: 20110505
  Transmission Date: 20111010
  Serious: Yes (Other)
  Sender: FDA-Public Use
  Company Number: GR-ASTRAZENECA-2011SE26489

PATIENT
  Age: 42 Year
  Sex: Male
  Weight: 128 kg

DRUGS (1)
  1. CRESTOR [Suspect]
     Indication: DYSLIPIDAEMIA
     Route: 048
     Dates: start: 20101115, end: 20101210

REACTIONS (2)
  - INFLUENZA [None]
  - MYALGIA [None]
